FAERS Safety Report 4611852-4 (Version None)
Quarter: 2005Q2

REPORT INFORMATION
  Report Type: 
  Country: None (occurrence: None)
  Receive Date: 20050308
  Receipt Date: 20050128
  Transmission Date: 20051028
  Serious: Yes (Other)
  Sender: FDA-Public Use
  Company Number: 2005UW01490

PATIENT
  Age: 88 Year
  Sex: Female

DRUGS (2)
  1. CRESTOR [Suspect]
     Indication: BLOOD CHOLESTEROL INCREASED
     Dates: start: 20041001
  2. LISTERINE      /USA/ [Suspect]
     Indication: DENTAL DISORDER PROPHYLAXIS
     Dosage: 1 TBSP  QD PO
     Route: 048
     Dates: start: 20041001

REACTIONS (2)
  - DRUG INTERACTION [None]
  - PRURITUS [None]
